FAERS Safety Report 8444011-8 (Version None)
Quarter: 2012Q2

REPORT INFORMATION
  Report Type: 
  Country: None (occurrence: None)
  Receive Date: 20120618
  Receipt Date: 20120612
  Transmission Date: 20120825
  Serious: Yes (Other)
  Sender: FDA-Public Use
  Company Number: PHHY2012NL050626

PATIENT
  Sex: Female

DRUGS (7)
  1. ZOMETA [Suspect]
     Dosage: 4 MG/100ML, 1X PER 28 DAYS
     Dates: start: 20120612
  2. ACETAMINOPHEN [Concomitant]
     Dosage: 500 MG
  3. ZOMETA [Suspect]
     Indication: BREAST CANCER
     Dosage: 4 MG/100ML, 1X PER 28 DAYS
     Dates: start: 20110412
  4. ARTHROTEC [Concomitant]
     Dosage: 75 (3DD)
  5. TAMOXIFEN CITRATE [Concomitant]
     Dosage: 1DD
  6. ZOMETA [Suspect]
     Dosage: 4 MG/100ML, 1X PER 28 DAYS
     Dates: start: 20120514
  7. ALPRAZALON [Concomitant]
     Dosage: 0.25 (1DD)

REACTIONS (3)
  - HAEMOGLOBIN DECREASED [None]
  - DYSPNOEA [None]
  - LUNG DISORDER [None]
